FAERS Safety Report 6380893-1 (Version None)
Quarter: 2009Q3

REPORT INFORMATION
  Report Type: 
  Country: None (occurrence: None)
  Receive Date: 20090929
  Receipt Date: 20090922
  Transmission Date: 20100115
  Serious: Yes (Other)
  Sender: FDA-Public Use
  Company Number: B0556226A

PATIENT
  Sex: Female

DRUGS (5)
  1. SEROXAT [Suspect]
     Dates: start: 20000607
  2. ATARAX [Concomitant]
     Dates: start: 20021203
  3. ESCITALOPRAM [Concomitant]
     Dates: start: 20070508
  4. DIAZEPAM [Concomitant]
     Dates: start: 20070524
  5. HYDROXYZINE [Concomitant]
     Dates: start: 20070523

REACTIONS (19)
  - AGITATION [None]
  - CONFUSIONAL STATE [None]
  - CRYING [None]
  - DIARRHOEA [None]
  - DISTURBANCE IN ATTENTION [None]
  - DIZZINESS [None]
  - DRUG WITHDRAWAL SYNDROME [None]
  - HYPERHIDROSIS [None]
  - INTENTIONAL SELF-INJURY [None]
  - LETHARGY [None]
  - MEMORY IMPAIRMENT [None]
  - NAUSEA [None]
  - NIGHTMARE [None]
  - PALPITATIONS [None]
  - SLEEP DISORDER [None]
  - SUICIDAL IDEATION [None]
  - TENSION [None]
  - TREMOR [None]
  - VOMITING [None]
